FAERS Safety Report 24663905 (Version 1)
Quarter: 2024Q4

REPORT INFORMATION
  Report Type: Spontaneous
  Country: FR (occurrence: FR)
  Receive Date: 20241126
  Receipt Date: 20241126
  Transmission Date: 20250115
  Serious: Yes (Death, Other)
  Sender: RANBAXY
  Company Number: FR-EMA-DD-20190802-sahu_k-163112

PATIENT
  Age: 54 Year
  Sex: Female

DRUGS (2)
  1. CYCLOSPORINE [Suspect]
     Active Substance: CYCLOSPORINE
     Indication: Chronic graft versus host disease
     Dosage: UNK
     Route: 065
  2. METHOTREXATE [Suspect]
     Active Substance: METHOTREXATE
     Indication: Graft versus host disease
     Dosage: UNK
     Route: 065

REACTIONS (9)
  - Polymyositis [Unknown]
  - Inflammation [Unknown]
  - Muscular weakness [Unknown]
  - Acute graft versus host disease in skin [Unknown]
  - Off label use [Fatal]
  - Respiratory failure [Fatal]
  - Nephropathy toxic [Unknown]
  - Drug ineffective for unapproved indication [Fatal]
  - Graft versus host disease [Fatal]
